FAERS Safety Report 13317429 (Version 1)
Quarter: 2017Q1

REPORT INFORMATION
  Report Type: Spontaneous
  Country: US (occurrence: US)
  Receive Date: 20170309
  Receipt Date: 20170309
  Transmission Date: 20170428
  Serious: Yes (Hospitalization)
  Sender: FDA-Public Use
  Company Number: None

PATIENT
  Age: 70 Year
  Sex: Male
  Weight: 86.4 kg

DRUGS (2)
  1. PITAVASTATIN [Suspect]
     Active Substance: PITAVASTATIN
     Indication: ARTERIOSCLEROSIS CORONARY ARTERY
     Route: 048
     Dates: start: 20131117, end: 20170301
  2. PITAVASTATIN [Suspect]
     Active Substance: PITAVASTATIN
     Indication: AORTIC ANEURYSM
     Route: 048
     Dates: start: 20131117, end: 20170301

REACTIONS (2)
  - Rhabdomyolysis [None]
  - Hepatic enzyme increased [None]

NARRATIVE: CASE EVENT DATE: 20170301
